FAERS Safety Report 19439531 (Version 3)
Quarter: 2021Q4

REPORT INFORMATION
  Report Type: Report from Study
  Country: IL (occurrence: IL)
  Receive Date: 20210619
  Receipt Date: 20211222
  Transmission Date: 20220303
  Serious: Yes (Death, Hospitalization)
  Sender: FDA-Public Use
  Company Number: IL-ABBVIE-19K-082-3004402-00

PATIENT
  Age: 86 Year
  Sex: Female
  Weight: 64 kg

DRUGS (20)
  1. VENCLEXTA [Suspect]
     Active Substance: VENETOCLAX
     Indication: Acute myeloid leukaemia
     Route: 048
     Dates: start: 20191028, end: 20191028
  2. VENCLEXTA [Suspect]
     Active Substance: VENETOCLAX
     Route: 048
     Dates: start: 20191029, end: 20191029
  3. VENCLEXTA [Suspect]
     Active Substance: VENETOCLAX
     Route: 048
     Dates: start: 20191030, end: 20191218
  4. AZACITIDINE [Suspect]
     Active Substance: AZACITIDINE
     Indication: Acute myeloid leukaemia
     Dosage: CYCLE 1
     Route: 058
     Dates: start: 20191028, end: 20191103
  5. AZACITIDINE [Suspect]
     Active Substance: AZACITIDINE
     Dosage: CYCLE 2
     Route: 058
     Dates: start: 20191124, end: 20191202
  6. IRON [Concomitant]
     Active Substance: IRON
     Indication: Prophylaxis
     Dates: start: 20190925
  7. AMIODARONE [Concomitant]
     Active Substance: AMIODARONE
     Indication: Ventricular fibrillation
     Dates: start: 20181113
  8. AMLODIPINE [Concomitant]
     Active Substance: AMLODIPINE BESYLATE
     Indication: Hypertension
     Dates: start: 20191025
  9. VITAMIN B12 [Concomitant]
     Active Substance: CYANOCOBALAMIN
     Indication: Prophylaxis
  10. CALCIUM\CHOLECALCIFEROL [Concomitant]
     Active Substance: CALCIUM\CHOLECALCIFEROL
     Indication: Prophylaxis
     Dates: start: 20070308
  11. CIPRODEX [Concomitant]
     Active Substance: CIPROFLOXACIN HYDROCHLORIDE\DEXAMETHASONE
     Indication: Antibiotic prophylaxis
  12. FOLIC ACID [Concomitant]
     Active Substance: FOLIC ACID
     Indication: Prophylaxis
     Dates: start: 20190822
  13. FUROSEMIDE [Concomitant]
     Active Substance: FUROSEMIDE
     Indication: Prophylaxis
     Dates: start: 20181226
  14. HYDROCORTISONE [Concomitant]
     Active Substance: HYDROCORTISONE
     Indication: Steroid therapy
     Dates: start: 20191030, end: 20191103
  15. NEXIUM [Concomitant]
     Active Substance: ESOMEPRAZOLE MAGNESIUM
     Indication: Gastric pH decreased
     Dates: start: 20190429
  16. PLAVIX [Concomitant]
     Active Substance: CLOPIDOGREL BISULFATE
     Indication: Anticoagulant therapy
     Dates: start: 20190822
  17. SIMVAXON [Concomitant]
     Indication: Hypercholesterolaemia
     Dates: start: 20100725
  18. SLOW K [Concomitant]
     Active Substance: POTASSIUM CHLORIDE
     Indication: Prophylaxis
     Dates: start: 20191103, end: 20191103
  19. SOPA K [Concomitant]
     Indication: Prophylaxis
     Dates: start: 20191101, end: 20191102
  20. FEXOFENADINE [Concomitant]
     Active Substance: FEXOFENADINE HYDROCHLORIDE
     Indication: Antiallergic therapy
     Dates: start: 20191030, end: 20191103

REACTIONS (24)
  - Death [Fatal]
  - Febrile neutropenia [Recovered/Resolved]
  - Febrile neutropenia [Recovered/Resolved]
  - Gait disturbance [Not Recovered/Not Resolved]
  - Loss of personal independence in daily activities [Not Recovered/Not Resolved]
  - Pain [Not Recovered/Not Resolved]
  - Discomfort [Not Recovered/Not Resolved]
  - Anxiety [Recovered/Resolved]
  - Depression [Not Recovered/Not Resolved]
  - Loss of personal independence in daily activities [Not Recovered/Not Resolved]
  - Insomnia [Not Recovered/Not Resolved]
  - Asthenia [Not Recovered/Not Resolved]
  - Decreased appetite [Not Recovered/Not Resolved]
  - Tension [Recovered/Resolved]
  - Irritability [Not Recovered/Not Resolved]
  - Haemorrhage [Recovered/Resolved]
  - Hypokalaemia [Recovered/Resolved]
  - Constipation [Recovered/Resolved]
  - Fatigue [Not Recovered/Not Resolved]
  - Diarrhoea [Not Recovered/Not Resolved]
  - Nausea [Recovered/Resolved]
  - Neutropenia [Recovered/Resolved]
  - Implant site haemorrhage [Recovered/Resolved]
  - Anorectal infection [Recovered/Resolved]

NARRATIVE: CASE EVENT DATE: 20190101
